FAERS Safety Report 6105173-0 (Version None)
Quarter: 2009Q1

REPORT INFORMATION
  Report Type: 
  Country: None (occurrence: None)
  Receive Date: 20090306
  Receipt Date: 20090226
  Transmission Date: 20090719
  Serious: Yes (Hospitalization)
  Sender: FDA-Public Use
  Company Number: US-BIOGENIDEC-2009BI006276

PATIENT
  Age: 51 Year
  Sex: Female

DRUGS (1)
  1. AVONEX [Suspect]
     Indication: MULTIPLE SCLEROSIS
     Route: 030
     Dates: start: 20040201

REACTIONS (6)
  - CONCUSSION [None]
  - FALL [None]
  - FIBROMYALGIA [None]
  - IRRITABLE BOWEL SYNDROME [None]
  - MIGRAINE [None]
  - MUSCLE SPASMS [None]
